FAERS Safety Report 8432392-0 (Version None)
Quarter: 2012Q2

REPORT INFORMATION
  Report Type: 
  Country: None (occurrence: None)
  Receive Date: 20120607
  Receipt Date: 20100927
  Transmission Date: 20120825
  Serious: Yes (Hospitalization)
  Sender: FDA-Public Use
  Company Number: 2010EU004308

PATIENT
  Sex: Female
  Weight: 74 kg

DRUGS (6)
  1. TACROLIMUS [Suspect]
     Indication: RENAL TRANSPLANT
     Dosage: 5 MG, D, ORAL
     Route: 048
     Dates: start: 20070901
  2. NITROFURANTIN (NITROFURANTOIN) [Concomitant]
  3. PREDNISOLONE [Concomitant]
  4. IMURAN [Concomitant]
  5. CALCICHEW D3 FORTE (CALCIUM CARBONATE, COLECALCIFEROL) [Concomitant]
  6. FOLIC ACID [Concomitant]

REACTIONS (5)
  - HYPERTENSION [None]
  - FOETAL GROWTH RESTRICTION [None]
  - MATERNAL EXPOSURE DURING PREGNANCY [None]
  - CAESAREAN SECTION [None]
  - PREMATURE BABY [None]
